FAERS Safety Report 26218700 (Version 1)
Quarter: 2025Q4

REPORT INFORMATION
  Report Type: Spontaneous
  Country: CN (occurrence: CN)
  Receive Date: 20251231
  Receipt Date: 20251231
  Transmission Date: 20260117
  Serious: Yes (Hospitalization, Other)
  Sender: ELI LILLY AND COMPANY
  Company Number: CN-ELI_LILLY_AND_COMPANY-CN202512030525

PATIENT
  Age: 68 Year
  Sex: Female

DRUGS (5)
  1. HUMALOG [Suspect]
     Active Substance: INSULIN LISPRO
     Indication: Diabetes mellitus
     Dosage: 21 U, BID (EACH MORNING AND EVENING)
     Route: 065
  2. HUMALOG MIX75/25 [Suspect]
     Active Substance: INSULIN LISPRO
     Indication: Diabetes mellitus
     Dosage: 21 U, BID (EACH MORNING AND EVENING)
     Route: 065
  3. HUMALOG MIX50/50 [Suspect]
     Active Substance: INSULIN LISPRO
     Indication: Diabetes mellitus
     Dosage: 21 U, BID (EACH MORNING AND EVENING)
     Route: 065
  4. COVID-19 VACCINE NOS [Suspect]
     Active Substance: COVID-19 VACCINE
     Indication: COVID-19
     Dosage: UNK UNK, UNKNOWN
     Route: 065
  5. METFORMIN [Suspect]
     Active Substance: METFORMIN HYDROCHLORIDE
     Indication: Product used for unknown indication
     Dosage: UNK UNK, UNKNOWN
     Route: 065

REACTIONS (12)
  - Cerebral infarction [Unknown]
  - Renal injury [Unknown]
  - Pain [Unknown]
  - Blood glucose increased [Unknown]
  - Vision blurred [Unknown]
  - Urinary incontinence [Unknown]
  - Abdominal discomfort [Unknown]
  - Periorbital swelling [Unknown]
  - Headache [Unknown]
  - Feeling hot [Unknown]
  - Nausea [Unknown]
  - Intentional product misuse [Unknown]

NARRATIVE: CASE EVENT DATE: 20200101
